FAERS Safety Report 8101493-9 (Version None)
Quarter: 2012Q1

REPORT INFORMATION
  Report Type: 
  Country: None (occurrence: None)
  Receive Date: 20120129
  Receipt Date: 20111010
  Transmission Date: 20120608
  Serious: No
  Sender: FDA-Public Use
  Company Number: US-ABBOTT-11P-163-0863116-00

PATIENT
  Age: 58 Year
  Sex: Female

DRUGS (6)
  1. SUPPLEMENTS [Concomitant]
     Indication: PRODUCT USED FOR UNKNOWN INDICATION
  2. PREDNISONE TAB [Concomitant]
     Indication: PRODUCT USED FOR UNKNOWN INDICATION
  3. VITAMIN TAB [Concomitant]
     Indication: PRODUCT USED FOR UNKNOWN INDICATION
  4. METHOTREXATE [Concomitant]
     Indication: PRODUCT USED FOR UNKNOWN INDICATION
  5. HUMIRA [Suspect]
     Indication: RHEUMATOID ARTHRITIS
     Dates: start: 20110930
  6. HUMIRA [Suspect]
     Dates: start: 20110516, end: 20110930

REACTIONS (4)
  - BURSITIS [None]
  - ILL-DEFINED DISORDER [None]
  - ARTHRALGIA [None]
  - INJECTION SITE ERYTHEMA [None]
